FAERS Safety Report 22332582 (Version 1)
Quarter: 2023Q2

REPORT INFORMATION
  Report Type: Spontaneous
  Country: US (occurrence: US)
  Receive Date: 20230517
  Receipt Date: 20230517
  Transmission Date: 20230722
  Serious: Yes (Other)
  Sender: FDA-Public Use
  Company Number: US-ORPHANEU-2018006514

PATIENT

DRUGS (1)
  1. CYSTADANE [Suspect]
     Active Substance: BETAINE
     Indication: Product used for unknown indication
     Dosage: UNK
     Route: 048

REACTIONS (2)
  - Stent placement [Recovering/Resolving]
  - Atrioventricular block [Recovering/Resolving]
